FAERS Safety Report 12765424 (Version 1)
Quarter: 2016Q3

REPORT INFORMATION
  Report Type: Spontaneous
  Country: US (occurrence: US)
  Receive Date: 20160915
  Receipt Date: 20160915
  Transmission Date: 20161109
  Serious: No
  Sender: FDA-Public Use
  Company Number: None

PATIENT
  Sex: Female

DRUGS (1)
  1. COPAXONE [Suspect]
     Active Substance: GLATIRAMER ACETATE
     Indication: MULTIPLE SCLEROSIS
     Route: 058
     Dates: start: 20140521, end: 20160713

REACTIONS (10)
  - Swelling face [None]
  - Therapy cessation [None]
  - Rash [None]
  - Anaphylactic reaction [None]
  - Genital swelling [None]
  - Peripheral swelling [None]
  - Pyrexia [None]
  - Wheezing [None]
  - Throat tightness [None]
  - Erythema [None]
